FAERS Safety Report 5066246-7 (Version None)
Quarter: 2006Q3

REPORT INFORMATION
  Report Type: 
  Country: None (occurrence: None)
  Receive Date: 20060727
  Receipt Date: 20060724
  Transmission Date: 20061208
  Serious: Yes (Hospitalization, Other)
  Sender: FDA-Public Use
  Company Number: 2006BI006781

PATIENT
  Age: 56 Year
  Sex: Female

DRUGS (1)
  1. AVONEX [Suspect]
     Indication: MULTIPLE SCLEROSIS
     Dosage: 30 UG; QW; IM
     Route: 030
     Dates: start: 19970301

REACTIONS (5)
  - CATARACT [None]
  - DENTAL CARIES [None]
  - GINGIVAL DISORDER [None]
  - GINGIVAL INFECTION [None]
  - LOOSE TOOTH [None]
